FAERS Safety Report 12242996 (Version 1)
Quarter: 2016Q2

REPORT INFORMATION
  Report Type: Spontaneous
  Country: BR (occurrence: BR)
  Receive Date: 20160406
  Receipt Date: 20160406
  Transmission Date: 20160815
  Serious: Yes (Hospitalization)
  Sender: FDA-Public Use
  Company Number: BR-BIOMARINAP-BR-2016-109378

PATIENT
  Age: 14 Year
  Sex: Female
  Weight: 20.5 kg

DRUGS (1)
  1. NAGLAZYME [Suspect]
     Active Substance: GALSULFASE
     Indication: MUCOPOLYSACCHARIDOSIS VI
     Dosage: UNK UNK, QW
     Route: 042
     Dates: start: 20080804, end: 20160323

REACTIONS (5)
  - Chikungunya virus infection [Recovering/Resolving]
  - Arthralgia [Recovering/Resolving]
  - Rash macular [Recovering/Resolving]
  - Pyrexia [Recovering/Resolving]
  - Swelling face [Recovering/Resolving]

NARRATIVE: CASE EVENT DATE: 20160322
